FAERS Safety Report 12481987 (Version 1)
Quarter: 2016Q2

REPORT INFORMATION
  Report Type: Spontaneous
  Country: GB (occurrence: GB)
  Receive Date: 20160620
  Receipt Date: 20160620
  Transmission Date: 20160815
  Serious: Yes (Hospitalization, Other)
  Sender: FDA-Public Use
  Company Number: GB-WATSON-2016-12826

PATIENT
  Age: 75 Year
  Sex: Male
  Weight: 99 kg

DRUGS (14)
  1. ACICLOVIR [Concomitant]
     Active Substance: ACYCLOVIR
     Indication: ANTIVIRAL PROPHYLAXIS
     Dosage: 200 MG, QID
     Route: 048
     Dates: start: 20160318, end: 20160407
  2. LOPERAMIDE [Concomitant]
     Active Substance: LOPERAMIDE
     Indication: DIARRHOEA
     Dosage: 2 MG, PRN
     Route: 048
     Dates: start: 20160322, end: 20160324
  3. METOCLOPRAMIDE. [Concomitant]
     Active Substance: METOCLOPRAMIDE
     Indication: PROPHYLAXIS OF NAUSEA AND VOMITING
     Dosage: 10 MG, PRN
     Route: 048
     Dates: start: 20160318
  4. PREDNISOLONE (UNKNOWN) [Suspect]
     Active Substance: PREDNISOLONE
     Indication: PLASMA CELL MYELOMA
     Dosage: 130 MG, UNKNOWN (ON DAYS 1,2,3,4)
     Route: 048
     Dates: start: 20160318, end: 20160321
  5. VELCADE [Suspect]
     Active Substance: BORTEZOMIB
     Indication: PLASMA CELL MYELOMA
     Dosage: 2.75 MG, UNKNOWN(ON DAYS 1,4,8,11,22,25,29 AND 32)
     Route: 058
     Dates: start: 20160318, end: 20160328
  6. DOXAZOSIN [Concomitant]
     Active Substance: DOXAZOSIN\DOXAZOSIN MESYLATE
     Indication: HYPERTENSION
     Dosage: 4 MG, DAILY
     Route: 048
  7. ATORVASTATIN [Concomitant]
     Active Substance: ATORVASTATIN
     Indication: HYPERTENSION
     Dosage: 5 MG, DAILY
     Route: 048
  8. METOCLOPRAMIDE. [Concomitant]
     Active Substance: METOCLOPRAMIDE
     Indication: PROPHYLAXIS OF NAUSEA AND VOMITING
  9. MELPHALAN [Suspect]
     Active Substance: MELPHALAN
     Indication: PLASMA CELL MYELOMA
     Dosage: 20 MG, UNKNOWN(ON DAYS 1,2,3,4)
     Route: 048
     Dates: start: 20160318, end: 20160321
  10. ALLOPURINOL. [Concomitant]
     Active Substance: ALLOPURINOL
     Indication: PROPHYLAXIS
     Dosage: 300 MG, DAILY
     Route: 048
     Dates: start: 20160318, end: 20160428
  11. RAMIPRIL. [Concomitant]
     Active Substance: RAMIPRIL
     Indication: HYPERTENSION
     Dosage: 5 MG, DAILY
     Route: 048
  12. RANITIDINE. [Concomitant]
     Active Substance: RANITIDINE
     Indication: PROPHYLAXIS
     Dosage: 150 MG, BID
     Route: 048
     Dates: start: 20160318
  13. COCODAMOL [Concomitant]
     Active Substance: ACETAMINOPHEN\CODEINE PHOSPHATE
     Indication: PAIN
     Dosage: 2 DF, PRN
     Route: 048
  14. ZOLEDRONIC ACID [Concomitant]
     Active Substance: ZOLEDRONIC ACID
     Indication: PROPHYLAXIS
     Dosage: 4 MG, ONCE A MONTH
     Route: 042
     Dates: start: 20160321

REACTIONS (4)
  - Neutrophil count decreased [Not Recovered/Not Resolved]
  - Eye infection [Unknown]
  - Herpes zoster [Not Recovered/Not Resolved]
  - Diarrhoea [Unknown]

NARRATIVE: CASE EVENT DATE: 20160322
